FAERS Safety Report 20790904 (Version 1)
Quarter: 2022Q2

REPORT INFORMATION
  Report Type: Report from Study
  Country: US (occurrence: US)
  Receive Date: 20220505
  Receipt Date: 20220505
  Transmission Date: 20220720
  Serious: Yes (Other)
  Sender: FDA-Public Use
  Company Number: US-BIOVITRUM-2022US05850

PATIENT
  Sex: Female

DRUGS (4)
  1. KINERET [Suspect]
     Active Substance: ANAKINRA
     Indication: Rheumatoid arthritis
     Dates: start: 20220316
  2. KINERET [Suspect]
     Active Substance: ANAKINRA
     Route: 030
     Dates: start: 20201203, end: 20201203
  3. KINERET [Suspect]
     Active Substance: ANAKINRA
     Route: 030
     Dates: start: 20201231, end: 20201231
  4. KINERET [Suspect]
     Active Substance: ANAKINRA
     Route: 030
     Dates: start: 20210128, end: 20210128

REACTIONS (2)
  - Rheumatoid arthritis [Unknown]
  - Drug ineffective [Unknown]
